FAERS Safety Report 13407422 (Version 2)
Quarter: 2018Q1

REPORT INFORMATION
  Report Type: Spontaneous
  Country: TR (occurrence: TR)
  Receive Date: 20170405
  Receipt Date: 20180131
  Transmission Date: 20180508
  Serious: Yes (Hospitalization)
  Sender: FDA-Public Use
  Company Number: TR-MYLANLABS-2017M1020938

PATIENT
  Age: 17 Year
  Sex: Male

DRUGS (5)
  1. OLANZAPINE. [Suspect]
     Active Substance: OLANZAPINE
     Indication: PRODUCT USED FOR UNKNOWN INDICATION
     Dosage: 10 MG, QD
  2. OLANZAPINE. [Suspect]
     Active Substance: OLANZAPINE
     Dosage: 5 MG, QD
  3. CLOZAPINE. [Suspect]
     Active Substance: CLOZAPINE
     Indication: PRODUCT USED FOR UNKNOWN INDICATION
     Dosage: 12.5 MG, QD
  4. BIPERIDEN [Suspect]
     Active Substance: BIPERIDEN
     Indication: PRODUCT USED FOR UNKNOWN INDICATION
     Dosage: 2 MG, QD
  5. BIPERIDEN [Suspect]
     Active Substance: BIPERIDEN
     Dosage: 6 MG, QD

REACTIONS (17)
  - Blood creatine phosphokinase increased [Unknown]
  - Blood lactate dehydrogenase increased [Unknown]
  - Ventricular failure [Recovering/Resolving]
  - Wheezing [Recovering/Resolving]
  - Transaminases increased [Unknown]
  - Dyspnoea [Recovering/Resolving]
  - Leukocytosis [Recovering/Resolving]
  - Vomiting [Recovering/Resolving]
  - Haemoptysis [Recovering/Resolving]
  - Neuroleptic malignant syndrome [Recovering/Resolving]
  - Product use issue [Unknown]
  - Hyperthermia [Recovering/Resolving]
  - Heart rate irregular [Recovering/Resolving]
  - Troponin T increased [Unknown]
  - Pulmonary oedema [Recovering/Resolving]
  - Confusional state [Recovering/Resolving]
  - Blood pressure abnormal [Recovering/Resolving]
